FAERS Safety Report 23619364 (Version 1)
Quarter: 2024Q1

REPORT INFORMATION
  Report Type: Spontaneous
  Country: JP (occurrence: JP)
  Receive Date: 20240311
  Receipt Date: 20240311
  Transmission Date: 20240409
  Serious: Yes (Hospitalization, Other)
  Sender: FDA-Public Use
  Company Number: JP-002147023-NVSJ2023JP015228

PATIENT
  Sex: Male

DRUGS (1)
  1. BEOVU [Suspect]
     Active Substance: BROLUCIZUMAB-DBLL
     Indication: Age-related macular degeneration
     Dosage: 6 MG,LEFT EYE
     Route: 031
     Dates: start: 20230818, end: 20230818

REACTIONS (7)
  - Retinal artery occlusion [Not Recovered/Not Resolved]
  - Blindness [Not Recovered/Not Resolved]
  - Uveitis [Recovered/Resolved]
  - Retinal vasculitis [Not Recovered/Not Resolved]
  - Retinal vascular disorder [Unknown]
  - Glaucoma [Unknown]
  - Intraocular pressure increased [Unknown]

NARRATIVE: CASE EVENT DATE: 20230901
